FAERS Safety Report 6043312-0 (Version None)
Quarter: 2009Q1

REPORT INFORMATION
  Report Type: 
  Country: None (occurrence: None)
  Receive Date: 20090120
  Receipt Date: 20090107
  Transmission Date: 20090719
  Serious: Yes (Hospitalization, Other)
  Sender: FDA-Public Use
  Company Number: US-BAYER-US-2006-008992

PATIENT
  Age: 59 Year
  Sex: Female

DRUGS (8)
  1. BETASERON [Suspect]
     Indication: RELAPSING-REMITTING MULTIPLE SCLEROSIS
     Dosage: TOTAL DAILY DOSE: 8 MIU
     Route: 058
  2. BETASERON [Suspect]
     Dosage: TOTAL DAILY DOSE: 8 MIU
     Route: 058
     Dates: start: 20040108
  3. ADVAIR DISKUS 100/50 [Concomitant]
     Indication: ASTHMA
     Route: 055
  4. SINGULAIR [Concomitant]
     Indication: ASTHMA
     Route: 055
  5. ZOLOFT [Concomitant]
     Indication: ANXIETY
     Dosage: TOTAL DAILY DOSE: 200 MG
  6. KLONOPIN [Concomitant]
     Indication: ANXIETY
     Dosage: TOTAL DAILY DOSE: 4 MG
  7. BACLOFEN [Concomitant]
     Indication: MUSCLE SPASMS
  8. LYRICA [Concomitant]
     Indication: FIBROMYALGIA

REACTIONS (11)
  - ARTHRALGIA [None]
  - ARTHROPATHY [None]
  - FALL [None]
  - GAIT DISTURBANCE [None]
  - HIP ARTHROPLASTY [None]
  - INJECTION SITE SCAR [None]
  - MEDICAL DEVICE COMPLICATION [None]
  - NEUROPATHY PERIPHERAL [None]
  - PAIN IN EXTREMITY [None]
  - PLANTAR FASCIITIS [None]
  - WEIGHT DECREASED [None]
